FAERS Safety Report 23245260 (Version 1)
Quarter: 2023Q4

REPORT INFORMATION
  Report Type: Spontaneous
  Country: US (occurrence: US)
  Receive Date: 20231130
  Receipt Date: 20231130
  Transmission Date: 20240110
  Serious: No
  Sender: FDA-Public Use
  Company Number: US-ALVOGEN-2023091961

PATIENT
  Sex: Female

DRUGS (2)
  1. TERIPARATIDE [Suspect]
     Active Substance: TERIPARATIDE
     Indication: Polyglandular autoimmune syndrome type I
     Dates: start: 202212
  2. TERIPARATIDE [Suspect]
     Active Substance: TERIPARATIDE
     Indication: Polyglandular autoimmune syndrome type I
     Dosage: HAD INJECTED ALMOST 10 - 14 DOSES?STRENGTH: 250 UG/ML

REACTIONS (2)
  - Device breakage [Unknown]
  - Off label use [Unknown]
